FAERS Safety Report 18975135 (Version 3)
Quarter: 2022Q1

REPORT INFORMATION
  Report Type: Other
  Country: GB (occurrence: GB)
  Receive Date: 20210306
  Receipt Date: 20220222
  Transmission Date: 20220424
  Serious: Yes (Death, Hospitalization, Other)
  Sender: FDA-Public Use
  Company Number: GB-CELLTRION INC.-2021GB002923

PATIENT

DRUGS (14)
  1. INFLIXIMAB [Suspect]
     Active Substance: INFLIXIMAB
     Indication: Psoriasis
     Dosage: 1 DF, EVERY 2 WEEKS (FIRST DOSE)
     Route: 042
     Dates: start: 20200612
  2. INFLIXIMAB [Suspect]
     Active Substance: INFLIXIMAB
     Dosage: (SECOND DOSE)
     Dates: start: 20200626
  3. INFLIXIMAB [Suspect]
     Active Substance: INFLIXIMAB
     Indication: Psoriasis
     Dosage: 120 MG, EVERY 2 WEEKS
     Route: 058
     Dates: start: 20200724
  4. EPINEPHRINE [Concomitant]
     Active Substance: EPINEPHRINE
  5. BETNOVATE [Concomitant]
     Active Substance: BETAMETHASONE
  6. CARBOXYMETHYLCELLULOSE SODIUM [Concomitant]
     Active Substance: CARBOXYMETHYLCELLULOSE SODIUM
     Dosage: DROPS
  7. EMOLLIN [Concomitant]
  8. ENSTILAR [Concomitant]
     Active Substance: BETAMETHASONE DIPROPIONATE\CALCIPOTRIENE HYDRATE
  9. EUMOVATE [Concomitant]
     Active Substance: CLOBETASONE BUTYRATE
  10. FLUCLOXACILLIN SODIUM [Concomitant]
     Active Substance: FLUCLOXACILLIN SODIUM
  11. GENTAMICIN SULFATE [Concomitant]
     Active Substance: GENTAMICIN SULFATE
  12. LINEZOLID [Concomitant]
     Active Substance: LINEZOLID
     Dosage: UNK
  13. PARAFFIN WHITE SOFT [Concomitant]
  14. MINERAL OIL [Concomitant]
     Active Substance: MINERAL OIL
     Dosage: 75/25

REACTIONS (7)
  - Erythrodermic psoriasis [Fatal]
  - Brain injury [Fatal]
  - Pneumonitis aspiration [Fatal]
  - Multiple organ dysfunction syndrome [Fatal]
  - Immunosuppression [Fatal]
  - Septic shock [Fatal]
  - Drug ineffective [Fatal]

NARRATIVE: CASE EVENT DATE: 20200828
